FAERS Safety Report 8422148-7 (Version None)
Quarter: 2012Q2

REPORT INFORMATION
  Report Type: 
  Country: None (occurrence: None)
  Receive Date: 20120608
  Receipt Date: 20120606
  Transmission Date: 20120825
  Serious: Yes (Death, Hospitalization)
  Sender: FDA-Public Use
  Company Number: PHHY2012AR048422

PATIENT
  Sex: Male

DRUGS (1)
  1. RASILEZ [Suspect]

REACTIONS (3)
  - BALANCE DISORDER [None]
  - SENSORY DISTURBANCE [None]
  - HYPONATRAEMIA [None]
